FAERS Safety Report 5402746-5 (Version None)
Quarter: 2007Q3

REPORT INFORMATION
  Report Type: 
  Country: None (occurrence: None)
  Receive Date: 20070727
  Receipt Date: 20070713
  Transmission Date: 20080115
  Serious: Yes (Hospitalization)
  Sender: FDA-Public Use
  Company Number: 158873ISR

PATIENT
  Age: 87 Year
  Sex: Male

DRUGS (1)
  1. LISINOPRIL [Suspect]
     Indication: HYPERTENSION
     Dosage: 5 MG(5 MG, 1 IN 1 D)
     Route: 048
     Dates: start: 20070201, end: 20070626

REACTIONS (1)
  - BLOOD POTASSIUM DECREASED [None]
